FAERS Safety Report 8093557-3 (Version None)
Quarter: 2012Q1

REPORT INFORMATION
  Report Type: 
  Country: None (occurrence: None)
  Receive Date: 20120129
  Receipt Date: 20111017
  Transmission Date: 20120608
  Serious: No
  Sender: FDA-Public Use
  Company Number: US-ABBOTT-11P-163-0865719-00

PATIENT
  Age: 32 Year
  Sex: Female

DRUGS (7)
  1. KLONOPIN [Concomitant]
     Indication: ANXIETY
  2. BIRTH CONTROL PILL [Concomitant]
     Indication: PRODUCT USED FOR UNKNOWN INDICATION
  3. PROZAC [Concomitant]
     Indication: PRODUCT USED FOR UNKNOWN INDICATION
     Dosage: DAILY
  4. KLONOPIN [Concomitant]
     Indication: INSOMNIA
  5. MULTI-VITAMIN [Concomitant]
     Indication: PRODUCT USED FOR UNKNOWN INDICATION
  6. HUMIRA [Suspect]
     Indication: CROHN'S DISEASE
     Dates: start: 20110823
  7. MERCAPTOPURINE [Concomitant]
     Indication: CROHN'S DISEASE
     Dosage: DAILY

REACTIONS (3)
  - OROPHARYNGEAL PAIN [None]
  - STREPTOCOCCAL INFECTION [None]
  - PYREXIA [None]
